FAERS Safety Report 6780750-2 (Version None)
Quarter: 2010Q2

REPORT INFORMATION
  Report Type: 
  Country: None (occurrence: None)
  Receive Date: 20100621
  Receipt Date: 20100609
  Transmission Date: 20101027
  Serious: No
  Sender: FDA-Public Use
  Company Number: US-JNJFOC-20100604138

PATIENT
  Sex: Female
  Weight: 54.43 kg

DRUGS (8)
  1. DURAGESIC-100 [Suspect]
     Indication: PAIN
     Route: 062
  2. LEVAQUIN [Concomitant]
     Indication: INFECTION
     Route: 065
  3. DIAZEPAM [Concomitant]
     Indication: ANXIETY
     Route: 048
  4. NEXIUM [Concomitant]
     Route: 048
  5. DILANTIN [Concomitant]
     Indication: CONVULSION
     Route: 048
  6. OXYCODONE [Concomitant]
     Indication: BREAKTHROUGH PAIN
     Route: 065
  7. NEORAL [Concomitant]
     Indication: IMMUNOSUPPRESSANT DRUG THERAPY
     Route: 048
  8. PREDNISONE [Concomitant]
     Indication: IMMUNOSUPPRESSANT DRUG THERAPY
     Route: 048

REACTIONS (3)
  - DRUG EFFECT DECREASED [None]
  - NAUSEA [None]
  - TREATMENT NONCOMPLIANCE [None]
